FAERS Safety Report 21713189 (Version 2)
Quarter: 2023Q4

REPORT INFORMATION
  Report Type: Spontaneous
  Country: US (occurrence: US)
  Receive Date: 20221212
  Receipt Date: 20231219
  Transmission Date: 20240110
  Serious: No
  Sender: FDA-Public Use
  Company Number: US-ORG100016242-2022002052

PATIENT
  Age: 69 Year
  Sex: Female

DRUGS (1)
  1. EXPAREL [Suspect]
     Active Substance: BUPIVACAINE
     Indication: Orthopaedic procedure
     Dosage: NOT PROVIDED
     Dates: start: 20220829, end: 20220829

REACTIONS (3)
  - Limb discomfort [Recovered/Resolved]
  - Hypoaesthesia [Recovered/Resolved]
  - Motor dysfunction [Recovered/Resolved]
